FAERS Safety Report 8778873 (Version 2)
Quarter: 2012Q4

REPORT INFORMATION
  Report Type: 
  Country: US (occurrence: US)
  Receive Date: 20120912
  Receipt Date: 20121102
  Transmission Date: 20130627
  Serious: Yes (Hospitalization)
  Sender: FDA-Public Use
  Company Number: US-JNJFOC-20120901289

PATIENT
  Age: 26 None
  Sex: Male
  Weight: 54.43 kg

DRUGS (2)
  1. RISPERDAL CONSTA [Suspect]
     Indication: PRODUCT USED FOR UNKNOWN INDICATION
     Route: 030
  2. RISPERDAL [Concomitant]
     Indication: PRODUCT USED FOR UNKNOWN INDICATION
     Dosage: at bedtime
     Route: 048

REACTIONS (2)
  - Hospitalisation [Recovered/Resolved]
  - Incorrect route of drug administration [Unknown]
